FAERS Safety Report 20686194 (Version 1)
Quarter: 2022Q2

REPORT INFORMATION
  Report Type: Spontaneous
  Country: US (occurrence: US)
  Receive Date: 20220407
  Receipt Date: 20220407
  Transmission Date: 20220720
  Serious: No
  Sender: FDA-Public Use
  Company Number: US-JAZZ-2022-US-003490

PATIENT
  Sex: Male

DRUGS (1)
  1. SUNOSI [Suspect]
     Active Substance: SOLRIAMFETOL
     Indication: Sleep apnoea syndrome
     Dosage: 75 MG ORALLY ONCE DAILY
     Route: 048
     Dates: start: 20220125

REACTIONS (1)
  - Mania [Unknown]

NARRATIVE: CASE EVENT DATE: 20220125
